FAERS Safety Report 13125028 (Version 1)
Quarter: 2017Q1

REPORT INFORMATION
  Report Type: Spontaneous
  Country: GB (occurrence: GB)
  Receive Date: 20170118
  Receipt Date: 20170118
  Transmission Date: 20170428
  Serious: Yes (Death)
  Sender: FDA-Public Use
  Company Number: GB-TEVA-729170ACC

PATIENT
  Sex: Male

DRUGS (4)
  1. MYFENAX [Suspect]
     Active Substance: MYCOPHENOLATE MOFETIL
     Route: 065
  2. CICLOSPORIN (NOVARTIS) [Suspect]
     Active Substance: CYCLOSPORINE
     Route: 065
  3. CICLOSPORIN (NOVARTIS) [Suspect]
     Active Substance: CYCLOSPORINE
     Route: 065
  4. PREDNISOLONE. [Suspect]
     Active Substance: PREDNISOLONE
     Route: 065

REACTIONS (1)
  - Death [Fatal]
